FAERS Safety Report 14820308 (Version 2)
Quarter: 2018Q2

REPORT INFORMATION
  Report Type: Report from Study
  Country: BR (occurrence: BR)
  Receive Date: 20180427
  Receipt Date: 20180625
  Transmission Date: 20180711
  Serious: Yes (Death, Hospitalization)
  Sender: FDA-Public Use
  Company Number: PHHY2018BR072545

PATIENT
  Sex: Male
  Weight: 43.5 kg

DRUGS (2)
  1. VOTRIENT [Suspect]
     Active Substance: PAZOPANIB HYDROCHLORIDE
     Dosage: 800 MG, BID
     Route: 048
  2. VOTRIENT [Suspect]
     Active Substance: PAZOPANIB HYDROCHLORIDE
     Indication: METASTATIC RENAL CELL CARCINOMA
     Dosage: 800 MG, QD
     Route: 048
     Dates: start: 20180308

REACTIONS (7)
  - Malaise [Recovering/Resolving]
  - Haemorrhage [Recovering/Resolving]
  - Pneumonia [Fatal]
  - Weight decreased [Unknown]
  - Thrombosis [Recovering/Resolving]
  - Incorrect dose administered [Unknown]
  - Impaired healing [Recovering/Resolving]
